FAERS Safety Report 25069408 (Version 1)
Quarter: 2025Q1

REPORT INFORMATION
  Report Type: Other
  Country: US (occurrence: US)
  Receive Date: 20250312
  Receipt Date: 20250312
  Transmission Date: 20250408
  Serious: Yes (Hospitalization, Other)
  Sender: B BRAUN
  Company Number: US-B.Braun Medical Inc.-2172731

PATIENT
  Age: 15 Year
  Sex: Female

DRUGS (5)
  1. ACETAMINOPHEN [Suspect]
     Active Substance: ACETAMINOPHEN
  2. TRANEXAMIC ACID [Suspect]
     Active Substance: TRANEXAMIC ACID
  3. ZOLPIDEM [Suspect]
     Active Substance: ZOLPIDEM TARTRATE
  4. CLONAZEPAM [Suspect]
     Active Substance: CLONAZEPAM
  5. AMLODIPINE [Suspect]
     Active Substance: AMLODIPINE BESYLATE

REACTIONS (3)
  - Somnolence [Unknown]
  - Overdose [Unknown]
  - Hypotension [Unknown]
